FAERS Safety Report 8713700 (Version 2)
Quarter: 2012Q4

REPORT INFORMATION
  Report Type: 
  Country: AU (occurrence: AU)
  Receive Date: 20120808
  Receipt Date: 20120822
  Transmission Date: 20130627
  Serious: Yes (Other)
  Sender: FDA-Public Use
  Company Number: AU-ELI_LILLY_AND_COMPANY-AU201207006547

PATIENT
  Age: 35 Year
  Sex: Female

DRUGS (1)
  1. ZYPREXA RELPREVV [Suspect]
     Dosage: 300 mg, 2/M

REACTIONS (5)
  - Dizziness [Unknown]
  - Vision blurred [Unknown]
  - Delirium [Unknown]
  - Irritability [Unknown]
  - Agitation [Unknown]
